FAERS Safety Report 15190447 (Version 9)
Quarter: 2021Q4

REPORT INFORMATION
  Report Type: Spontaneous
  Country: CZ (occurrence: CZ)
  Receive Date: 20180724
  Receipt Date: 20211115
  Transmission Date: 20220303
  Serious: Yes (Hospitalization, Other)
  Sender: FDA-Public Use
  Company Number: CZ-AUROBINDO-AUR-APL-2018-037079

PATIENT
  Age: 61 Year
  Sex: Male

DRUGS (19)
  1. LEVETIRACETAM [Suspect]
     Active Substance: LEVETIRACETAM
     Indication: Seizure
     Dosage: UNK
     Route: 065
     Dates: start: 2017, end: 2017
  2. LEVETIRACETAM [Suspect]
     Active Substance: LEVETIRACETAM
     Indication: Muscle spasms
  3. PYRAZINAMIDE [Suspect]
     Active Substance: PYRAZINAMIDE
     Indication: Meningitis tuberculous
     Dosage: 1500 MILLIGRAM, ONCE A DAY
     Route: 065
  4. PYRAZINAMIDE [Suspect]
     Active Substance: PYRAZINAMIDE
     Dosage: 2000 MILLIGRAM, ONCE A DAY
     Route: 065
  5. RIFAMPIN [Suspect]
     Active Substance: RIFAMPIN
     Indication: Meningitis tuberculous
     Dosage: 450 MILLIGRAM, ONCE A DAY
     Route: 065
  6. RIFAMPIN [Suspect]
     Active Substance: RIFAMPIN
     Indication: Tuberculosis
     Dosage: 600 MILLIGRAM, ONCE A DAY
     Route: 065
  7. STREPTOMYCIN [Suspect]
     Active Substance: STREPTOMYCIN SULFATE
     Indication: Meningitis tuberculous
     Dosage: UNK
     Route: 065
  8. STREPTOMYCIN [Suspect]
     Active Substance: STREPTOMYCIN SULFATE
     Indication: Tuberculosis
  9. ETHAMBUTOL [Suspect]
     Active Substance: ETHAMBUTOL HYDROCHLORIDE
     Indication: Meningitis tuberculous
     Dosage: 1200 MILLIGRAM, ONCE A DAY
     Route: 065
  10. ETHAMBUTOL [Suspect]
     Active Substance: ETHAMBUTOL HYDROCHLORIDE
     Indication: Tuberculosis
     Dosage: 1600 MILLIGRAM, ONCE A DAY
     Route: 065
  11. ISONIAZID [Suspect]
     Active Substance: ISONIAZID
     Indication: Meningitis tuberculous
     Dosage: 300 MILLIGRAM, ONCE A DAY
     Route: 065
     Dates: start: 201705
  12. ISONIAZID [Suspect]
     Active Substance: ISONIAZID
     Indication: Tuberculosis
     Dosage: 200 MILLIGRAM
     Route: 065
  13. ACYCLOVIR [Concomitant]
     Active Substance: ACYCLOVIR
     Indication: Encephalitis
     Dosage: UNK
     Route: 065
  14. ACYCLOVIR [Concomitant]
     Active Substance: ACYCLOVIR
     Indication: Meningitis bacterial
  15. CEFTRIAXONE [Concomitant]
     Active Substance: CEFTRIAXONE
     Indication: Encephalitis
     Dosage: UNK
     Route: 065
  16. AMPICILLIN [Concomitant]
     Active Substance: AMPICILLIN
     Indication: Meningitis listeria
     Dosage: UNK
     Route: 065
  17. AMPICILLIN [Concomitant]
     Active Substance: AMPICILLIN
     Indication: Listeria encephalitis
  18. AMPICILLIN [Concomitant]
     Active Substance: AMPICILLIN
     Indication: Antibiotic therapy
  19. AMPICILLIN [Concomitant]
     Active Substance: AMPICILLIN
     Indication: Encephalitis

REACTIONS (8)
  - Drug eruption [Recovering/Resolving]
  - Dermatitis allergic [Recovered/Resolved]
  - Leukopenia [Recovered/Resolved]
  - Lymphopenia [Recovered/Resolved]
  - Rash [Recovering/Resolving]
  - Product use in unapproved indication [Unknown]
  - Adverse event [Unknown]
  - Seizure [Recovered/Resolved]

NARRATIVE: CASE EVENT DATE: 20170101
